FAERS Safety Report 5588862-6 (Version None)
Quarter: 2008Q1

REPORT INFORMATION
  Report Type: 
  Country: None (occurrence: None)
  Receive Date: 20080111
  Receipt Date: 20080103
  Transmission Date: 20080703
  Serious: Yes (Other)
  Sender: FDA-Public Use
  Company Number: SI-PFIZER INC-2008001256

PATIENT
  Age: 63 Year
  Sex: Male

DRUGS (4)
  1. VIAGRA [Suspect]
     Indication: ERECTILE DYSFUNCTION
     Route: 048
  2. NAKOM [Concomitant]
     Route: 048
  3. REQUIP [Concomitant]
     Route: 048
  4. COMTAN [Concomitant]
     Route: 048

REACTIONS (3)
  - EYE DISORDER [None]
  - SOMNOLENCE [None]
  - VISUAL DISTURBANCE [None]
